FAERS Safety Report 8022632-4 (Version None)
Quarter: 2012Q1

REPORT INFORMATION
  Report Type: 
  Country: None (occurrence: None)
  Receive Date: 20120104
  Receipt Date: 20111229
  Transmission Date: 20120608
  Serious: Yes (Life-Threatening, Hospitalization)
  Sender: FDA-Public Use
  Company Number: FR-GLAXOSMITHKLINE-B0772146A

PATIENT
  Sex: Male

DRUGS (13)
  1. AVODART [Suspect]
     Indication: PRODUCT USED FOR UNKNOWN INDICATION
     Dosage: .5MG UNKNOWN
     Route: 048
     Dates: end: 20111122
  2. CARVEDILOL [Concomitant]
     Route: 065
  3. NEXEN [Suspect]
     Indication: PRODUCT USED FOR UNKNOWN INDICATION
     Route: 048
     Dates: end: 20111122
  4. VALSARTAN  AND HYDROCHLOROTHIAZIDE [Suspect]
     Indication: PRODUCT USED FOR UNKNOWN INDICATION
     Route: 048
     Dates: end: 20111122
  5. MEDIATENSYL [Suspect]
     Indication: PRODUCT USED FOR UNKNOWN INDICATION
     Route: 048
     Dates: end: 20111122
  6. GLUCOPHAGE [Suspect]
     Indication: PRODUCT USED FOR UNKNOWN INDICATION
     Dosage: 500MG TWICE PER DAY
     Route: 048
     Dates: end: 20111122
  7. TRAMADOL HCL [Suspect]
     Indication: PRODUCT USED FOR UNKNOWN INDICATION
     Route: 048
     Dates: end: 20111122
  8. FLUARIX 2011-12 SEASON [Suspect]
     Indication: PROPHYLAXIS
     Route: 030
     Dates: start: 20111104, end: 20111104
  9. HEXAQUINE [Suspect]
     Indication: PRODUCT USED FOR UNKNOWN INDICATION
     Route: 048
     Dates: start: 19980101, end: 20111122
  10. BEFIZAL [Suspect]
     Indication: PRODUCT USED FOR UNKNOWN INDICATION
     Route: 048
     Dates: end: 20111122
  11. ZOLPIDEM [Concomitant]
     Route: 065
  12. ACETAMINOPHEN [Concomitant]
     Route: 065
  13. AMLODIPINE BESYLATE [Concomitant]
     Route: 065

REACTIONS (1)
  - ANAEMIA HAEMOLYTIC AUTOIMMUNE [None]
